FAERS Safety Report 13047354 (Version 1)
Quarter: 2016Q4

REPORT INFORMATION
  Report Type: Spontaneous
  Country: US (occurrence: US)
  Receive Date: 20161220
  Receipt Date: 20161220
  Transmission Date: 20170207
  Serious: Yes (Other)
  Sender: FDA-Public Use
  Company Number: US-REGENERON PHARMACEUTICALS, INC.-2016-25017

PATIENT

DRUGS (1)
  1. EYLEA [Suspect]
     Active Substance: AFLIBERCEPT
     Indication: NEOVASCULAR AGE-RELATED MACULAR DEGENERATION
     Dosage: 2 MG MILLIGRAM(S), EVERY 5 WEEKS
     Route: 031
     Dates: end: 20160504

REACTIONS (5)
  - Endophthalmitis [Unknown]
  - Eye infection bacterial [Unknown]
  - Eye pain [Recovered/Resolved]
  - Blindness unilateral [Unknown]
  - Optic nerve injury [Unknown]

NARRATIVE: CASE EVENT DATE: 2016
